FAERS Safety Report 9410605 (Version 1)
Quarter: 2013Q2

REPORT INFORMATION
  Report Type: Spontaneous
  Country: US (occurrence: None)
  Receive Date: 20130628
  Receipt Date: 20130628
  Transmission Date: 20140414
  Serious: Yes (Hospitalization)
  Sender: FDA-Public Use
  Company Number: 2013PROUSA02901

PATIENT
  Age: 87 Year
  Sex: Male
  Weight: 82.4 kg

DRUGS (10)
  1. PROVENGE [Suspect]
     Indication: PROSTATE CANCER METASTATIC
     Route: 042
     Dates: start: 20130613, end: 20130613
  2. LUPRON (LEUPRORELIN ACETATE) [Concomitant]
  3. XGEVA (DENOSUMAB) [Concomitant]
  4. FLOMAX (TAMSULOSIN HYDROCHLORIDE) [Concomitant]
  5. COUMADIN (WARFARIN SODIUM) [Concomitant]
  6. DELTASONE (PREDNISONE) [Concomitant]
  7. CALCIUM (CALCIUM GLUCONATE) [Concomitant]
  8. CALCIUM PLUS VITAMIN D3 (CALCIUM CARBONATE, COLECALCIFEROL) [Concomitant]
  9. OMEGA 3 (FISH OIL) [Concomitant]
  10. BENADRYL (DIPHENHYDRAMINE HYDROCHLORIDE) [Concomitant]

REACTIONS (1)
  - Transient ischaemic attack [None]
